FAERS Safety Report 22224364 (Version 14)
Quarter: 2024Q2

REPORT INFORMATION
  Report Type: Report from Study
  Country: BR (occurrence: BR)
  Receive Date: 20230418
  Receipt Date: 20240524
  Transmission Date: 20240716
  Serious: Yes (Life-Threatening, Hospitalization, Other)
  Sender: FDA-Public Use
  Company Number: BR-TAKEDA-BR201913209

PATIENT
  Age: 12 Year
  Sex: Male
  Weight: 25 kg

DRUGS (18)
  1. IDURSULFASE [Suspect]
     Active Substance: IDURSULFASE
     Indication: Mucopolysaccharidosis II
     Dosage: 2 DOSAGE FORM
     Route: 065
     Dates: start: 201301
  2. IDURSULFASE [Suspect]
     Active Substance: IDURSULFASE
     Indication: Fabry^s disease
     Dosage: 2 DOSAGE FORM, 1/WEEK
     Route: 050
     Dates: start: 20210206
  3. IDURSULFASE [Suspect]
     Active Substance: IDURSULFASE
     Dosage: 2 DOSAGE FORM
     Route: 042
  4. IDURSULFASE [Suspect]
     Active Substance: IDURSULFASE
     Dosage: 2.5 DOSAGE FORM
     Route: 042
  5. IDURSULFASE [Suspect]
     Active Substance: IDURSULFASE
     Dosage: 2.5 DOSAGE FORM
     Route: 042
  6. IDURSULFASE [Suspect]
     Active Substance: IDURSULFASE
     Dosage: 3 DOSAGE FORM, 1/WEEK
     Route: 042
  7. IDURSULFASE [Suspect]
     Active Substance: IDURSULFASE
     Dosage: 2.5 DOSAGE FORM, 1/WEEK
     Route: 042
     Dates: start: 20230404
  8. IDURSULFASE [Suspect]
     Active Substance: IDURSULFASE
     Dosage: 2.5 DOSAGE FORM, 1/WEEK
     Route: 042
  9. IDURSULFASE [Suspect]
     Active Substance: IDURSULFASE
     Dosage: 2.5 DOSAGE FORM
     Route: 042
  10. IDURSULFASE [Suspect]
     Active Substance: IDURSULFASE
     Dosage: 15 MILLIGRAM, 1/WEEK
     Route: 042
  11. IDURSULFASE [Suspect]
     Active Substance: IDURSULFASE
     Dosage: 3 DOSAGE FORM, 1/WEEK
     Route: 042
  12. IDURSULFASE [Suspect]
     Active Substance: IDURSULFASE
     Dosage: 7.5 MILLILITER, 1/WEEK
     Route: 042
  13. IDURSULFASE [Suspect]
     Active Substance: IDURSULFASE
     Dosage: 2.5 DOSAGE FORM, 1/WEEK
     Route: 042
  14. IDURSULFASE [Suspect]
     Active Substance: IDURSULFASE
     Dosage: 2.5 DOSAGE FORM
     Route: 065
  15. IDURSULFASE [Suspect]
     Active Substance: IDURSULFASE
     Dosage: UNK
     Route: 065
  16. HYDROXYZINE HYDROCHLORIDE [Concomitant]
     Active Substance: HYDROXYZINE HYDROCHLORIDE
     Dosage: UNK
     Route: 065
  17. PERICIAZINE [Concomitant]
     Active Substance: PERICIAZINE
     Indication: Sleep disorder
     Dosage: UNK
     Route: 065
  18. PERICIAZINE [Concomitant]
     Active Substance: PERICIAZINE
     Indication: Psychomotor hyperactivity

REACTIONS (25)
  - Near drowning [Recovering/Resolving]
  - Respiratory arrest [Recovering/Resolving]
  - Disease progression [Unknown]
  - Apnoea [Unknown]
  - Apallic syndrome [Unknown]
  - Aspiration [Recovering/Resolving]
  - Psychomotor hyperactivity [Unknown]
  - Gait inability [Unknown]
  - Illness [Unknown]
  - Dysphagia [Unknown]
  - Dehydration [Unknown]
  - Weight increased [Unknown]
  - Influenza [Recovering/Resolving]
  - Secretion discharge [Recovering/Resolving]
  - Dysphonia [Recovering/Resolving]
  - Cough [Recovering/Resolving]
  - Pyrexia [Unknown]
  - Weight decreased [Unknown]
  - Blister [Recovered/Resolved]
  - Incorrect dose administered [Unknown]
  - Inappropriate schedule of product administration [Unknown]
  - Product dose omission issue [Unknown]
  - Product prescribing error [Unknown]
  - Product availability issue [Unknown]
  - Product supply issue [Recovered/Resolved]

NARRATIVE: CASE EVENT DATE: 20211105
